FAERS Safety Report 5248239-X (Version None)
Quarter: 2007Q1

REPORT INFORMATION
  Report Type: 
  Country: None (occurrence: None)
  Receive Date: 20070227
  Receipt Date: 20060907
  Transmission Date: 20070707
  Serious: No
  Sender: FDA-Public Use
  Company Number: US-BRISTOL-MYERS SQUIBB COMPANY-13502174

PATIENT
  Age: 64 Year
  Sex: Male
  Weight: 95 kg

DRUGS (7)
  1. GLUCOPHAGE [Suspect]
     Indication: DIABETES MELLITUS NON-INSULIN-DEPENDENT
     Route: 048
  2. SYNTHROID [Concomitant]
     Indication: HYPOTHYROIDISM
     Dosage: DOSING VARIES FROM 1/2 TABLET TO 1 COMPLETE TABLET DEPENDING ON BLOOD SUGARS
     Route: 048
  3. PRINIVIL [Concomitant]
  4. MULTI-VITAMIN [Concomitant]
  5. CHROMIUM PICOLINATE [Concomitant]
  6. ASCORBIC ACID [Concomitant]
  7. NIACIN [Concomitant]

REACTIONS (2)
  - FATIGUE [None]
  - PRURITUS [None]
